FAERS Safety Report 5199025-0 (Version None)
Quarter: 2006Q4

REPORT INFORMATION
  Report Type: 
  Country: None (occurrence: None)
  Receive Date: 20060919
  Receipt Date: 20060605
  Transmission Date: 20070319
  Serious: No
  Sender: FDA-Public Use
  Company Number: 2006US000708

PATIENT
  Age: 90 Year
  Sex: Male

DRUGS (5)
  1. VESICARE [Suspect]
     Indication: INCONTINENCE
     Dosage: 5 MG, ORAL; 10 MG ORAL
     Route: 048
     Dates: start: 20060315
  2. SINEMET (CARBIDOPA) [Concomitant]
  3. D12 [Concomitant]
  4. ASPIRIN [Concomitant]
  5. TYLENOL [Concomitant]

REACTIONS (1)
  - DRUG INEFFECTIVE [None]
